FAERS Safety Report 4915031-2 (Version None)
Quarter: 2006Q1

REPORT INFORMATION
  Report Type: 
  Country: None (occurrence: None)
  Receive Date: 20060217
  Receipt Date: 20060201
  Transmission Date: 20060701
  Serious: Yes (Other)
  Sender: FDA-Public Use
  Company Number: PHEH2006US01632

PATIENT
  Sex: Female

DRUGS (7)
  1. ZOMETA [Suspect]
     Indication: MULTIPLE MYELOMA
     Dosage: 4 MG MONTHLY
     Dates: start: 20031101, end: 20050901
  2. ZOMETA [Suspect]
     Dosage: 3.5 MG MONTHLY
     Dates: start: 20031101, end: 20050901
  3. AREDIA [Suspect]
     Indication: MULTIPLE MYELOMA
     Dosage: 90 MG MONTHLY
     Dates: start: 20020201, end: 20031001
  4. VINCRISTINE + ADRIAMYCIN + DEXAMETHASONE [Concomitant]
  5. PREDNISONE [Concomitant]
  6. THALIDOMIDE [Concomitant]
  7. MELPHALAN [Concomitant]

REACTIONS (1)
  - OSTEONECROSIS [None]
